FAERS Safety Report 23631275 (Version 2)
Quarter: 2024Q1

REPORT INFORMATION
  Report Type: Spontaneous
  Country: US (occurrence: US)
  Receive Date: 20240314
  Receipt Date: 20240322
  Transmission Date: 20240410
  Serious: Yes (Other)
  Sender: FDA-Public Use
  Company Number: US-BAYER-2024A035836

PATIENT
  Age: 8 Year
  Sex: Male

DRUGS (3)
  1. KOVALTRY [Suspect]
     Active Substance: ANTIHEMOPHILIC FACTOR, HUMAN RECOMBINANT
     Dosage: 1360 UNITS, INFUSION
     Dates: start: 20240317
  2. KOVALTRY [Suspect]
     Active Substance: ANTIHEMOPHILIC FACTOR, HUMAN RECOMBINANT
     Dosage: 3/1
  3. KOVALTRY [Suspect]
     Active Substance: ANTIHEMOPHILIC FACTOR, HUMAN RECOMBINANT
     Dosage: 3/2

REACTIONS (6)
  - Haemorrhage [None]
  - Head banging [None]
  - Contusion [None]
  - Fall [None]
  - Skin abrasion [None]
  - Joint swelling [None]

NARRATIVE: CASE EVENT DATE: 20240301
